FAERS Safety Report 8586405-6 (Version None)
Quarter: 2012Q3

REPORT INFORMATION
  Report Type: 
  Country: None (occurrence: None)
  Receive Date: 20120810
  Receipt Date: 20120730
  Transmission Date: 20120928
  Serious: Yes (Death, Hospitalization, Other)
  Sender: FDA-Public Use
  Company Number: US-ACTELION-A-CH2012-69626

PATIENT
  Age: 17 Year
  Sex: Female

DRUGS (7)
  1. DIGOXIN [Concomitant]
  2. LEVOTHYROXINE SODIUM [Concomitant]
  3. SILDENAFIL [Concomitant]
  4. WARFARIN SODIUM [Concomitant]
  5. OMEPRAZOLE [Concomitant]
  6. EPOPROSTENOL SODIUM [Suspect]
     Indication: PULMONARY ARTERIAL HYPERTENSION
     Route: 041
  7. ONDANSETRON [Concomitant]

REACTIONS (19)
  - DIARRHOEA [None]
  - HYPOTENSION [None]
  - RESUSCITATION [None]
  - CARDIOPULMONARY FAILURE [None]
  - CONDITION AGGRAVATED [None]
  - ANAEMIA [None]
  - HYPOXIA [None]
  - DYSPNOEA EXERTIONAL [None]
  - PLEURITIC PAIN [None]
  - THROMBOCYTOPENIA [None]
  - LEUKOPENIA [None]
  - TACHYPNOEA [None]
  - ELECTROCARDIOGRAM CHANGE [None]
  - PULMONARY HAEMORRHAGE [None]
  - CARDIO-RESPIRATORY ARREST [None]
  - RENAL FAILURE [None]
  - HAEMATEMESIS [None]
  - TACHYCARDIA [None]
  - TROPONIN INCREASED [None]
